FAERS Safety Report 7288842-9 (Version None)
Quarter: 2011Q1

REPORT INFORMATION
  Report Type: 
  Country: None (occurrence: None)
  Receive Date: 20110211
  Receipt Date: 20110202
  Transmission Date: 20110831
  Serious: Yes (Hospitalization)
  Sender: FDA-Public Use
  Company Number: BR-JNJFOC-20110201698

PATIENT
  Age: 71 Year
  Sex: Female

DRUGS (2)
  1. REMICADE [Suspect]
     Indication: RHEUMATOID ARTHRITIS
     Route: 042
  2. REMICADE [Suspect]
     Dosage: STARTED 28-OCT, YEAR NOT REPORTED
     Route: 042

REACTIONS (4)
  - ANAEMIA [None]
  - CELLULITIS [None]
  - DECREASED APPETITE [None]
  - MALAISE [None]
